FAERS Safety Report 5110283-0 (Version None)
Quarter: 2006Q3

REPORT INFORMATION
  Report Type: 
  Country: None (occurrence: None)
  Receive Date: 20060921
  Receipt Date: 20060911
  Transmission Date: 20061208
  Serious: Yes (Life-Threatening, Hospitalization)
  Sender: FDA-Public Use
  Company Number: GB-ROCHE-462555

PATIENT
  Age: 74 Year
  Sex: Male

DRUGS (9)
  1. CAPECITABINE [Suspect]
     Route: 065
     Dates: start: 20060801, end: 20060824
  2. ERLOTINIB [Suspect]
     Route: 065
     Dates: start: 20060801, end: 20060824
  3. AVASTIN [Suspect]
     Route: 065
     Dates: start: 20060801, end: 20060824
  4. GEMCITABINE [Suspect]
     Route: 065
     Dates: start: 20060801, end: 20060824
  5. METOCLOPRAMIDE [Concomitant]
  6. LANSOPRAZOLE [Concomitant]
  7. CHLORPROMAZINE [Concomitant]
  8. BENDROFLUAZIDE [Concomitant]
  9. CREAM NOS [Concomitant]

REACTIONS (11)
  - BILIARY SEPSIS [None]
  - COUGH [None]
  - DIARRHOEA [None]
  - EPISTAXIS [None]
  - HYPERTENSION [None]
  - INCONTINENCE [None]
  - INFECTION [None]
  - LETHARGY [None]
  - MUCOSAL INFLAMMATION [None]
  - ORAL PAIN [None]
  - URINE OUTPUT DECREASED [None]
